FAERS Safety Report 23517554 (Version 1)
Quarter: 2024Q1

REPORT INFORMATION
  Report Type: Spontaneous
  Country: US (occurrence: US)
  Receive Date: 20240213
  Receipt Date: 20240213
  Transmission Date: 20240410
  Serious: No
  Sender: FDA-Public Use
  Company Number: US-PFIZER INC-202400020872

PATIENT
  Age: 94 Year
  Sex: Female
  Weight: 67.13 kg

DRUGS (1)
  1. ESTRING [Suspect]
     Active Substance: ESTRADIOL
     Indication: Vaginal disorder
     Dosage: UNK

REACTIONS (1)
  - Fatigue [Unknown]
